FAERS Safety Report 4683959-7 (Version None)
Quarter: 2005Q2

REPORT INFORMATION
  Report Type: 
  Country: None (occurrence: None)
  Receive Date: 20050607
  Receipt Date: 20050311
  Transmission Date: 20051028
  Serious: Yes (Hospitalization)
  Sender: FDA-Public Use
  Company Number: US-MERCK-0503USA02672

PATIENT
  Age: 65 Year
  Sex: Female
  Weight: 61 kg

DRUGS (3)
  1. VIOXX [Suspect]
     Indication: ARTHRITIS
     Route: 048
     Dates: start: 19990822, end: 20040826
  2. VIOXX [Suspect]
     Route: 048
     Dates: start: 19990822, end: 20040826
  3. VIOXX [Suspect]
     Route: 048
     Dates: start: 19990822, end: 20040826

REACTIONS (14)
  - ACUTE MYOCARDIAL INFARCTION [None]
  - ANGINA PECTORIS [None]
  - CORONARY ARTERY DISEASE [None]
  - DYSPEPSIA [None]
  - DYSPNOEA [None]
  - EMOTIONAL DISTRESS [None]
  - ESSENTIAL HYPERTENSION [None]
  - GASTROOESOPHAGEAL REFLUX DISEASE [None]
  - MUSCULOSKELETAL DISCOMFORT [None]
  - ORAL FUNGAL INFECTION [None]
  - PALPITATIONS [None]
  - PLEURISY [None]
  - PRURITUS [None]
  - SLEEP APNOEA SYNDROME [None]
